FAERS Safety Report 24347111 (Version 1)
Quarter: 2024Q3

REPORT INFORMATION
  Report Type: Spontaneous
  Country: CN (occurrence: CN)
  Receive Date: 20240921
  Receipt Date: 20240921
  Transmission Date: 20241017
  Serious: Yes (Other)
  Sender: BAXTER
  Company Number: None

PATIENT
  Age: 37 Year
  Sex: Male
  Weight: 61 kg

DRUGS (9)
  1. CYCLOPHOSPHAMIDE [Suspect]
     Active Substance: CYCLOPHOSPHAMIDE
     Indication: Lymphoma
     Dosage: 0.5 G (300MG/M2), Q12H, D1-D3, AS A PART OF HYPER-CVAD A REGIMEN
     Route: 041
     Dates: start: 20240828, end: 20240830
  2. CYCLOPHOSPHAMIDE [Suspect]
     Active Substance: CYCLOPHOSPHAMIDE
     Indication: Chemotherapy
  3. MESNA [Suspect]
     Active Substance: MESNA
     Indication: Lymphoma
     Dosage: 600 MG/M2 DURING CYCLOPHOSPHAMIDE MEDICATION
     Route: 065
     Dates: start: 20240828, end: 20240830
  4. VINCRISTINE [Suspect]
     Active Substance: VINCRISTINE
     Indication: Lymphoma
     Dosage: 1.5 MG/M2, D1, AS A PART OF HYPER-CVAD A REGIMEN
     Route: 065
     Dates: start: 20240828, end: 20240828
  5. VINCRISTINE [Suspect]
     Active Substance: VINCRISTINE
     Indication: Chemotherapy
     Dosage: 1.5 MG/M2, DAY 11, AS A PART OF HYPER-CVAD A REGIMEN
     Route: 065
     Dates: start: 20240907, end: 20240907
  6. DEXAMETHASONE [Suspect]
     Active Substance: DEXAMETHASONE
     Indication: Lymphoma
     Dosage: 40MG/DAY, D1-D4, AS A PART OF HYPER-CVAD A REGIMEN
     Route: 065
     Dates: start: 20240828, end: 20240831
  7. DEXAMETHASONE [Suspect]
     Active Substance: DEXAMETHASONE
     Indication: Chemotherapy
     Dosage: 40MG/DAY, D11-D14, AS A PART OF HYPER-CVAD A REGIMEN
     Route: 065
     Dates: start: 20240907, end: 20240910
  8. ADRIAMYCIN [Suspect]
     Active Substance: DOXORUBICIN HYDROCHLORIDE
     Indication: Lymphoma
     Dosage: 16.6 MG/M2, D4-D6, AS A PART OF HYPER-CVAD A REGIMEN
     Route: 065
     Dates: start: 20240831, end: 20240902
  9. ADRIAMYCIN [Suspect]
     Active Substance: DOXORUBICIN HYDROCHLORIDE
     Indication: Chemotherapy

REACTIONS (1)
  - Myelosuppression [Recovering/Resolving]

NARRATIVE: CASE EVENT DATE: 20240906
